FAERS Safety Report 14997598 (Version 1)
Quarter: 2018Q2

REPORT INFORMATION
  Report Type: Spontaneous
  Country: US (occurrence: US)
  Receive Date: 20180611
  Receipt Date: 20180611
  Transmission Date: 20180711
  Serious: Yes (Hospitalization)
  Sender: FDA-Public Use
  Company Number: US-IMPAX LABORATORIES, INC-2018-IPXL-01965

PATIENT
  Age: 60 Year
  Sex: Male

DRUGS (2)
  1. BACLOFEN. [Interacting]
     Active Substance: BACLOFEN
     Indication: PRODUCT USE IN UNAPPROVED INDICATION
  2. BACLOFEN. [Suspect]
     Active Substance: BACLOFEN
     Indication: HICCUPS
     Dosage: 20 MG, TID
     Route: 065

REACTIONS (10)
  - Blood pressure increased [Recovered/Resolved]
  - Nausea [Recovered/Resolved]
  - Vomiting [Recovered/Resolved]
  - Coordination abnormal [Recovered/Resolved]
  - Toxicity to various agents [Recovered/Resolved]
  - Product use in unapproved indication [Unknown]
  - Lethargy [Recovered/Resolved]
  - Muscle spasms [Recovered/Resolved]
  - Apnoeic attack [Recovered/Resolved]
  - Drug-disease interaction [Unknown]
